FAERS Safety Report 8801202 (Version 1)
Quarter: 2012Q4

REPORT INFORMATION
  Report Type: 
  Country: JP (occurrence: JP)
  Receive Date: 20120920
  Receipt Date: 20120920
  Transmission Date: 20130627
  Serious: Yes (Death)
  Sender: FDA-Public Use
  Company Number: JP-ROCHE-1128108

PATIENT
  Age: 77 Year
  Sex: Female

DRUGS (2)
  1. XELODA [Suspect]
     Indication: METASTATIC GASTRIC CANCER
     Dosage: Three time administering
     Route: 048
     Dates: start: 2011
  2. CISPLATIN [Concomitant]
     Indication: METASTATIC GASTRIC CANCER
     Dosage: Three time administering
     Route: 041
     Dates: start: 2011

REACTIONS (1)
  - Death [Fatal]
